FAERS Safety Report 16638426 (Version 2)
Quarter: 2019Q3

REPORT INFORMATION
  Report Type: Spontaneous
  Country: CN (occurrence: CN)
  Receive Date: 20190726
  Receipt Date: 20190801
  Transmission Date: 20191004
  Serious: Yes (Death, Other)
  Sender: FDA-Public Use
  Company Number: CN-ASTRAZENECA-2019SF06901

PATIENT
  Age: 24217 Day
  Sex: Female
  Weight: 60 kg

DRUGS (1)
  1. LYNPARZA [Suspect]
     Active Substance: OLAPARIB
     Indication: OVARIAN EPITHELIAL CANCER
     Route: 048
     Dates: start: 201811

REACTIONS (9)
  - Haemorrhage [Not Recovered/Not Resolved]
  - Haemoglobin decreased [Not Recovered/Not Resolved]
  - Therapeutic product effect decreased [Not Recovered/Not Resolved]
  - Ileus [Not Recovered/Not Resolved]
  - Dyspnoea [Fatal]
  - Feeding disorder [Unknown]
  - Haematochezia [Fatal]
  - Respiratory failure [Fatal]
  - Asthma [Unknown]

NARRATIVE: CASE EVENT DATE: 20190207
